FAERS Safety Report 23790302 (Version 3)
Quarter: 2024Q2

REPORT INFORMATION
  Report Type: Spontaneous
  Country: RO (occurrence: RO)
  Receive Date: 20240427
  Receipt Date: 20240527
  Transmission Date: 20240715
  Serious: Yes (Other)
  Sender: FDA-Public Use
  Company Number: RO-AMGEN-ROUSP2024081342

PATIENT
  Age: 51 Year
  Sex: Female

DRUGS (10)
  1. XGEVA [Suspect]
     Active Substance: DENOSUMAB
     Indication: Bone neoplasm
     Dosage: 120 MILLIGRAM, Q4WK
     Route: 058
     Dates: start: 202310, end: 202402
  2. XGEVA [Suspect]
     Active Substance: DENOSUMAB
     Indication: Invasive breast carcinoma
  3. FULVESTRANT [Suspect]
     Active Substance: FULVESTRANT
     Indication: Bone neoplasm
     Dosage: 500 MILLIGRAM, Q4WK
     Route: 030
     Dates: start: 202310, end: 202402
  4. FULVESTRANT [Suspect]
     Active Substance: FULVESTRANT
     Indication: Invasive breast carcinoma
  5. PALBOCICLIB [Suspect]
     Active Substance: PALBOCICLIB
     Indication: Bone neoplasm
     Dosage: 125 MILLIGRAM,
     Route: 065
  6. PALBOCICLIB [Suspect]
     Active Substance: PALBOCICLIB
     Indication: Invasive breast carcinoma
  7. ANASTROZOLE [Suspect]
     Active Substance: ANASTROZOLE
     Indication: Bone neoplasm
     Dosage: 1 MILLIGRAM, QD
     Route: 065
     Dates: start: 2018
  8. ANASTROZOLE [Suspect]
     Active Substance: ANASTROZOLE
     Indication: Invasive breast carcinoma
  9. ZOLEDRONIC ACID [Suspect]
     Active Substance: ZOLEDRONIC ACID
     Indication: Invasive breast carcinoma
     Dosage: 4 MILLIGRAM, Q3MO
     Route: 042
  10. ZOLEDRONIC ACID [Suspect]
     Active Substance: ZOLEDRONIC ACID
     Indication: Bone neoplasm

REACTIONS (1)
  - Breast cancer metastatic [Unknown]
